FAERS Safety Report 12191282 (Version 2)
Quarter: 2016Q2

REPORT INFORMATION
  Report Type: Spontaneous
  Country: CH (occurrence: CH)
  Receive Date: 20160318
  Receipt Date: 20160404
  Transmission Date: 20160815
  Serious: Yes (Hospitalization)
  Sender: FDA-Public Use
  Company Number: CH-TEVA-642747ISR

PATIENT
  Age: 69 Year
  Sex: Male

DRUGS (4)
  1. ENOXAPARIN [Suspect]
     Active Substance: ENOXAPARIN
     Dosage: 2 MG/KG DAILY;
     Route: 058
     Dates: start: 2014
  2. CISPLATIN. [Suspect]
     Active Substance: CISPLATIN
     Indication: SQUAMOUS CELL CARCINOMA OF THE HYPOPHARYNX
     Route: 065
     Dates: start: 2014
  3. CETUXIMAB [Suspect]
     Active Substance: CETUXIMAB
     Indication: SQUAMOUS CELL CARCINOMA OF THE HYPOPHARYNX
     Route: 065
     Dates: start: 2014
  4. 5-FLUOROURACIL [Suspect]
     Active Substance: FLUOROURACIL
     Indication: SQUAMOUS CELL CARCINOMA OF THE HYPOPHARYNX
     Route: 065
     Dates: start: 2014

REACTIONS (6)
  - Heparin-induced thrombocytopenia [Unknown]
  - Peripheral ischaemia [Unknown]
  - Venous aneurysm [Unknown]
  - Deep vein thrombosis [Unknown]
  - Peripheral artery thrombosis [Unknown]
  - Extremity necrosis [Unknown]

NARRATIVE: CASE EVENT DATE: 2014
